FAERS Safety Report 15676345 (Version 1)
Quarter: 2018Q4

REPORT INFORMATION
  Report Type: Report from Study
  Country: US (occurrence: US)
  Receive Date: 20181130
  Receipt Date: 20181130
  Transmission Date: 20190205
  Serious: Yes (Hospitalization)
  Sender: FDA-Public Use
  Company Number: US-MALLINCKRODT-T201803356

PATIENT
  Age: 69 Year
  Sex: Male

DRUGS (2)
  1. REPOSITORY CORTICOTROPIN INJECTION [Suspect]
     Active Substance: CORTICOTROPIN
     Indication: FOCAL SEGMENTAL GLOMERULOSCLEROSIS
     Dosage: 80 UNITS/1 ML, 2 TIMES PER WEEK
     Route: 058
     Dates: start: 201802, end: 2018
  2. REPOSITORY CORTICOTROPIN INJECTION [Suspect]
     Active Substance: CORTICOTROPIN
     Indication: NEPHROSCLEROSIS
     Dosage: 80 UNITS/1 ML, 2 TIMES PER WEEK MONDAYS, THURSDAYS
     Route: 058
     Dates: start: 2018, end: 2018

REACTIONS (10)
  - Skin bacterial infection [Recovering/Resolving]
  - Fall [Unknown]
  - Blood pressure decreased [Recovering/Resolving]
  - Gait disturbance [Unknown]
  - Patella fracture [Unknown]
  - Gastric ulcer [Not Recovered/Not Resolved]
  - Haemoglobin decreased [Recovering/Resolving]
  - Fluid retention [Unknown]
  - Presyncope [Unknown]
  - Muscular weakness [Unknown]

NARRATIVE: CASE EVENT DATE: 2018
